FAERS Safety Report 5490669-5 (Version None)
Quarter: 2007Q4

REPORT INFORMATION
  Report Type: 
  Country: None (occurrence: None)
  Receive Date: 20071019
  Receipt Date: 20071012
  Transmission Date: 20080405
  Serious: Yes (Other)
  Sender: FDA-Public Use
  Company Number: CA-ASTRAZENECA-2007UW24091

PATIENT
  Age: 75 Year

DRUGS (7)
  1. CRESTOR [Suspect]
     Route: 048
  2. ATIVAN [Concomitant]
  3. NEXIUM [Concomitant]
  4. VITAMIN A [Concomitant]
  5. ASCORBIC ACID [Concomitant]
  6. VITAMIN D [Concomitant]
  7. VITAMIN E [Concomitant]

REACTIONS (3)
  - EYE HAEMORRHAGE [None]
  - INSOMNIA [None]
  - MUSCLE SPASMS [None]
